FAERS Safety Report 17204436 (Version 2)
Quarter: 2020Q4

REPORT INFORMATION
  Report Type: Report from Study
  Country: NL (occurrence: NL)
  Receive Date: 20191226
  Receipt Date: 20201010
  Transmission Date: 20210113
  Serious: Yes (Other)
  Sender: FDA-Public Use
  Company Number: NVSC2019NL076764

PATIENT
  Age: 64 Year
  Sex: Male

DRUGS (3)
  1. SANDOSTATINE LAR [Suspect]
     Active Substance: OCTREOTIDE ACETATE
  2. SANDOSTATINE LAR [Suspect]
     Active Substance: OCTREOTIDE ACETATE
  3. SANDOSTATINE LAR [Suspect]
     Active Substance: OCTREOTIDE ACETATE
     Indication: NEUROENDOCRINE TUMOUR
     Dosage: 1 DF (30 MG / 2 ML), Q4W
     Route: 030

REACTIONS (4)
  - Malignant neoplasm progression [Unknown]
  - Abdominal neoplasm [Unknown]
  - Swelling [Unknown]
  - Neoplasm [Unknown]

NARRATIVE: CASE EVENT DATE: 20191218
